FAERS Safety Report 5006358-7 (Version None)
Quarter: 2006Q2

REPORT INFORMATION
  Report Type: 
  Country: None (occurrence: None)
  Receive Date: 20060516
  Receipt Date: 20060504
  Transmission Date: 20061013
  Serious: Yes (Other)
  Sender: FDA-Public Use
  Company Number: 2006060403

PATIENT
  Age: 29 Year
  Sex: Male

DRUGS (11)
  1. ZYVOX [Suspect]
     Indication: ENTEROCOCCAL INFECTION
     Dosage: 1200 MG (600 MG, 2 IN 1 D), INTRAVENOUS
     Route: 042
     Dates: start: 20060101
  2. PREDNISONE TAB [Suspect]
     Indication: ILL-DEFINED DISORDER
  3. CYCLOSPORINE [Suspect]
     Indication: ILL-DEFINED DISORDER
  4. ACYCLOVIR [Concomitant]
  5. HYDROCHLOROTHIAZIDE [Concomitant]
  6. INSULIN [Concomitant]
  7. LACTINEX (LACTOBACILLUS ACIDOPHILUS, LACTOBACILLUS BULGARICUS) [Concomitant]
  8. PREVACID [Concomitant]
  9. METOPROLOL SUCCINATE [Concomitant]
  10. TOTAL PARENTERAL NUTRITION (TOTAL PARENTERAL NUTRITION) [Concomitant]
  11. VFEND [Concomitant]

REACTIONS (3)
  - BLOOD PRESSURE INCREASED [None]
  - DISEASE RECURRENCE [None]
  - ENTEROCOCCAL INFECTION [None]
